FAERS Safety Report 21029098 (Version 4)
Quarter: 2022Q3

REPORT INFORMATION
  Report Type: Report from Study
  Country: FR (occurrence: FR)
  Receive Date: 20220630
  Receipt Date: 20220729
  Transmission Date: 20221027
  Serious: Yes (Death, Life-Threatening, Hospitalization, Other)
  Sender: FDA-Public Use
  Company Number: FR-GILEAD-2022-0586967

PATIENT
  Sex: Female
  Weight: 66 kg

DRUGS (1)
  1. SACITUZUMAB GOVITECAN [Suspect]
     Active Substance: SACITUZUMAB GOVITECAN
     Indication: Triple negative breast cancer
     Dosage: 720 MG ON D1 AND D8 EVERY 21 DAYS ( 720MG)
     Route: 042
     Dates: start: 20220613, end: 20220620

REACTIONS (4)
  - Febrile neutropenia [Fatal]
  - Asthenia [Recovered/Resolved]
  - Metastases to central nervous system [Recovered/Resolved]
  - Diarrhoea [Recovered/Resolved]

NARRATIVE: CASE EVENT DATE: 20220617
